FAERS Safety Report 7504127-7 (Version None)
Quarter: 2011Q2

REPORT INFORMATION
  Report Type: 
  Country: None (occurrence: None)
  Receive Date: 20110401
  Receipt Date: 20110204
  Transmission Date: 20111010
  Serious: No
  Sender: FDA-Public Use
  Company Number: US-004686

PATIENT
  Sex: Male
  Weight: 56.6 kg

DRUGS (1)
  1. FIRMAGON [Suspect]
     Indication: PROSTATE CANCER
     Dosage: 240 MG 1X, 2 120 MG SUB Q-LOADING DOSE SUBCUTANEOUS
     Route: 058
     Dates: start: 20110204

REACTIONS (3)
  - PAIN [None]
  - LOSS OF CONSCIOUSNESS [None]
  - PRESYNCOPE [None]
